FAERS Safety Report 9902862 (Version 1)
Quarter: 2014Q1

REPORT INFORMATION
  Report Type: Spontaneous
  Country: US (occurrence: US)
  Receive Date: 20140217
  Receipt Date: 20140217
  Transmission Date: 20141002
  Serious: Yes (Hospitalization)
  Sender: FDA-Public Use
  Company Number: PHHY2014US017091

PATIENT
  Age: 50 Year
  Sex: Male

DRUGS (11)
  1. 5-FLUOROURACIL [Suspect]
     Indication: CHEMOTHERAPY
     Dosage: 370 MG/M2, UNK
     Route: 040
  2. 5-FLUOROURACIL [Suspect]
     Dosage: 370 MG/M2, UNK
     Route: 040
  3. PACLITAXEL [Concomitant]
     Indication: CHEMOTHERAPY
     Dosage: 175 MG/M2, UNK
     Route: 042
  4. PACLITAXEL [Concomitant]
     Dosage: 135 MG/M2, UNK
  5. LEUCOVORIN CALCIUM [Concomitant]
     Indication: CHEMOTHERAPY
     Dosage: 500 MG/M2, UNK
     Route: 042
  6. BENZODIAZEPINES [Concomitant]
  7. ACETAMINOPHEN AND CODEINE [Concomitant]
  8. ONDANSETRON [Concomitant]
  9. DIPHENOXYLATE HCL AND ATROPINE SULFATE [Concomitant]
  10. HEPARIN [Concomitant]
     Indication: ANTICOAGULANT THERAPY
  11. COUMADIN//COUMARIN [Concomitant]
     Indication: ANTICOAGULANT THERAPY

REACTIONS (11)
  - Metabolic encephalopathy [Recovered/Resolved]
  - Disorientation [Unknown]
  - Neutropenia [Unknown]
  - CSF protein increased [Unknown]
  - Depressed level of consciousness [Unknown]
  - Grand mal convulsion [Unknown]
  - Confusional state [Unknown]
  - Diarrhoea [Unknown]
  - Dehydration [Unknown]
  - Vomiting [Unknown]
  - Nausea [Unknown]
